FAERS Safety Report 8196843-1 (Version None)
Quarter: 2012Q1

REPORT INFORMATION
  Report Type: 
  Country: None (occurrence: None)
  Receive Date: 20120307
  Receipt Date: 20120227
  Transmission Date: 20120608
  Serious: Yes (Hospitalization)
  Sender: FDA-Public Use
  Company Number: 2012MA002671

PATIENT
  Age: 51 Year
  Sex: Female

DRUGS (2)
  1. BUPROPION HYDROCHLORIDE (WELLBUTRIN XL) [Suspect]
  2. DIPHENHYDRAMINE HCL [Concomitant]

REACTIONS (20)
  - ELECTROCARDIOGRAM QRS COMPLEX PROLONGED [None]
  - GASTROINTESTINAL HAEMORRHAGE [None]
  - HEPATIC FAILURE [None]
  - RENAL TUBULAR NECROSIS [None]
  - HAEMODIALYSIS [None]
  - TOXICITY TO VARIOUS AGENTS [None]
  - BLOOD GLUCOSE INCREASED [None]
  - MENTAL STATUS CHANGES [None]
  - VENTRICULAR TACHYCARDIA [None]
  - GRAND MAL CONVULSION [None]
  - PUPILLARY REFLEX IMPAIRED [None]
  - SINUS TACHYCARDIA [None]
  - BLOOD PRESSURE INCREASED [None]
  - PNEUMONIA ASPIRATION [None]
  - COLITIS [None]
  - THROMBOCYTOPENIA [None]
  - RENAL FAILURE ACUTE [None]
  - SYSTOLIC DYSFUNCTION [None]
  - LETHARGY [None]
  - CARDIOGENIC SHOCK [None]
